FAERS Safety Report 9637218 (Version 2)
Quarter: 2013Q4

REPORT INFORMATION
  Report Type: Spontaneous
  Country: US (occurrence: US)
  Receive Date: 20131022
  Receipt Date: 20131206
  Transmission Date: 20140711
  Serious: Yes (Hospitalization)
  Sender: FDA-Public Use
  Company Number: US-BIOGENIDEC-2013BI099763

PATIENT
  Age: 41 Year
  Sex: Female
  Weight: 88 kg

DRUGS (3)
  1. TECFIDERA [Suspect]
     Indication: RELAPSING-REMITTING MULTIPLE SCLEROSIS
     Route: 048
     Dates: start: 20130801
  2. TECFIDERA [Suspect]
     Indication: RELAPSING-REMITTING MULTIPLE SCLEROSIS
     Route: 048
     Dates: start: 20130815, end: 20130824
  3. CHOLESTYRAMINE [Concomitant]
     Indication: INFLAMMATORY BOWEL DISEASE
     Dates: start: 2011

REACTIONS (4)
  - Colitis [Unknown]
  - Abdominal pain [Recovered/Resolved]
  - Nausea [Unknown]
  - Diarrhoea haemorrhagic [Recovered/Resolved]
